FAERS Safety Report 5933214-X (Version None)
Quarter: 2008Q4

REPORT INFORMATION
  Report Type: 
  Country: None (occurrence: None)
  Receive Date: 20081028
  Receipt Date: 20081016
  Transmission Date: 20090506
  Serious: Yes (Hospitalization, Other)
  Sender: FDA-Public Use
  Company Number: AT-PFIZER INC-2006056144

PATIENT
  Sex: Male
  Weight: 60 kg

DRUGS (7)
  1. SU-011,248 [Suspect]
     Indication: GASTROINTESTINAL STROMAL TUMOUR
     Route: 048
     Dates: start: 20060330, end: 20060524
  2. DURAGESIC-100 [Concomitant]
     Dosage: TEXT:25 MCG/H
     Route: 062
     Dates: start: 20060201, end: 20060424
  3. DURAGESIC-100 [Concomitant]
     Dosage: TEXT:25 MCG/H
     Route: 062
     Dates: start: 20060504
  4. ACEMIN [Concomitant]
     Route: 048
     Dates: start: 20060412
  5. ARANESP [Concomitant]
     Dosage: DAILY DOSE:500MCG
     Route: 058
     Dates: start: 20060510, end: 20060510
  6. LASILACTON [Concomitant]
     Dosage: TEXT:20/50
     Route: 048
     Dates: start: 20050601
  7. ACECOMB [Concomitant]
     Route: 048
     Dates: start: 20060415

REACTIONS (5)
  - DISEASE PROGRESSION [None]
  - ENCEPHALOPATHY [None]
  - EPILEPSY [None]
  - HYPERTENSION [None]
  - HYPOGLYCAEMIA [None]
